FAERS Safety Report 21312713 (Version 1)
Quarter: 2022Q3

REPORT INFORMATION
  Report Type: Report from Study
  Country: US (occurrence: US)
  Receive Date: 20220909
  Receipt Date: 20220909
  Transmission Date: 20221026
  Serious: Yes (Hospitalization)
  Sender: FDA-Public Use
  Company Number: US-Accord-276294

PATIENT
  Sex: Female
  Weight: 97.07 kg

DRUGS (1)
  1. CLOZAPINE [Suspect]
     Active Substance: CLOZAPINE
     Indication: Schizophrenia
     Dosage: 200 MG IN THE MORNING AND 275 MG AT NIGHT

REACTIONS (3)
  - Vomiting [Unknown]
  - Bereavement [Unknown]
  - Delusion [Unknown]
